FAERS Safety Report 14555104 (Version 1)
Quarter: 2018Q1

REPORT INFORMATION
  Report Type: Spontaneous
  Country: US (occurrence: US)
  Receive Date: 20180220
  Receipt Date: 20180220
  Transmission Date: 20180509
  Serious: Yes (Other)
  Sender: FDA-Public Use
  Company Number: US-ELI_LILLY_AND_COMPANY-US201802006181

PATIENT
  Sex: Female

DRUGS (2)
  1. BASAGLAR [Suspect]
     Active Substance: INSULIN GLARGINE
     Indication: TYPE 1 DIABETES MELLITUS
     Dosage: 12 U, DAILY (7 UNITS IN MORNING AND 5 UNITS AT NIGHT)
     Route: 065
  2. HUMALOG [Suspect]
     Active Substance: INSULIN LISPRO
     Indication: TYPE 1 DIABETES MELLITUS
     Dosage: UNK, DAILY (SLIDING SCALE)
     Route: 065
     Dates: start: 1984

REACTIONS (9)
  - Visual impairment [Unknown]
  - Urticaria [Unknown]
  - Insulin resistance [Unknown]
  - Incorrect dose administered [Unknown]
  - Blood glucose abnormal [Unknown]
  - Gastrointestinal disorder [Not Recovered/Not Resolved]
  - Inappropriate schedule of drug administration [Unknown]
  - Diabetic neuropathy [Unknown]
  - Blood glucose increased [Unknown]
